FAERS Safety Report 9985009 (Version 1)
Quarter: 2014Q1

REPORT INFORMATION
  Report Type: Report from Study
  Country: US (occurrence: US)
  Receive Date: 20140307
  Receipt Date: 20140307
  Transmission Date: 20141002
  Serious: No
  Sender: FDA-Public Use
  Company Number: US-ABBVIE-14P-163-1186396-00

PATIENT
  Age: 50 Year
  Sex: Female

DRUGS (8)
  1. HUMIRA [Suspect]
     Indication: RHEUMATOID ARTHRITIS
     Dates: start: 200610
  2. METHOTREXATE [Concomitant]
     Indication: RHEUMATOID ARTHRITIS
     Dosage: 8 PILLS WEEKLY
  3. KLONOPIN [Concomitant]
     Indication: RESTLESS LEGS SYNDROME
  4. REQUIP [Concomitant]
     Indication: RESTLESS LEGS SYNDROME
     Dosage: 3 PILLS AT BEDTIME
  5. DEXILANT [Concomitant]
     Indication: GASTROOESOPHAGEAL REFLUX DISEASE
  6. METOPROLOL [Concomitant]
     Indication: HEART RATE INCREASED
  7. RESTASIS [Concomitant]
     Indication: DRY EYE
  8. FELDENE [Concomitant]
     Indication: RHEUMATOID ARTHRITIS

REACTIONS (1)
  - Alopecia [Not Recovered/Not Resolved]
